FAERS Safety Report 6701924-2 (Version None)
Quarter: 2010Q2

REPORT INFORMATION
  Report Type: 
  Country: None (occurrence: None)
  Receive Date: 20100427
  Receipt Date: 20100416
  Transmission Date: 20101027
  Serious: Yes (Hospitalization)
  Sender: FDA-Public Use
  Company Number: M1001905

PATIENT
  Age: 75 Year
  Sex: Male
  Weight: 65.0005 kg

DRUGS (8)
  1. AMIODARONE (MFR UNKNOWN) (AMIODARONE) [Suspect]
     Indication: DRUG USE FOR UNKNOWN INDICATION
     Dosage: ORAL
     Route: 048
     Dates: start: 19961001
  2. BISOPROLOL FUMARATE [Suspect]
     Indication: DRUG USE FOR UNKNOWN INDICATION
     Dosage: ORAL
     Route: 048
     Dates: start: 20070423
  3. EPLERENONE [Suspect]
     Indication: CARDIAC FAILURE
     Dosage: BLINDED INFORMATION
     Dates: start: 20070424, end: 20090217
  4. FUROSEMIDE [Concomitant]
  5. ACENOCOUMAROL (ACENOCOUMAROL) [Concomitant]
  6. OMEPRAZOLE [Concomitant]
  7. LEVOTHYROXINE SODIUM [Concomitant]
  8. RAMIPRIL [Concomitant]

REACTIONS (1)
  - SYNCOPE [None]
